FAERS Safety Report 16976320 (Version 3)
Quarter: 2019Q4

REPORT INFORMATION
  Report Type: Spontaneous
  Country: US (occurrence: US)
  Receive Date: 20191030
  Receipt Date: 20191212
  Transmission Date: 20200122
  Serious: Yes (Other)
  Sender: FDA-Public Use
  Company Number: US-JNJFOC-20191035034

PATIENT
  Sex: Male
  Weight: 59.02 kg

DRUGS (1)
  1. RISPERDAL [Suspect]
     Active Substance: RISPERIDONE
     Indication: SCHIZOPHRENIA
     Route: 048
     Dates: start: 2006, end: 2006

REACTIONS (7)
  - Drug hypersensitivity [Unknown]
  - Prostate cancer [Unknown]
  - Gastrointestinal carcinoma [Unknown]
  - Nausea [Unknown]
  - Respiratory disorder [Unknown]
  - Fatigue [Unknown]
  - Poor quality product administered [Unknown]

NARRATIVE: CASE EVENT DATE: 2006
